FAERS Safety Report 8426793-4 (Version None)
Quarter: 2012Q2

REPORT INFORMATION
  Report Type: 
  Country: None (occurrence: None)
  Receive Date: 20120611
  Receipt Date: 20120608
  Transmission Date: 20120825
  Serious: Yes (Hospitalization)
  Sender: FDA-Public Use
  Company Number: PHHO2012US008171

PATIENT
  Sex: Female
  Weight: 64.127 kg

DRUGS (1)
  1. EXJADE [Suspect]
     Indication: IRON OVERLOAD
     Dosage: UNK
     Route: 048
     Dates: start: 20110404, end: 20120517

REACTIONS (3)
  - CONSTIPATION [None]
  - HYPONATRAEMIA [None]
  - ILEUS [None]
